FAERS Safety Report 5937285-6 (Version None)
Quarter: 2008Q4

REPORT INFORMATION
  Report Type: 
  Country: None (occurrence: None)
  Receive Date: 20081031
  Receipt Date: 20081023
  Transmission Date: 20090506
  Serious: Yes (Hospitalization, Other)
  Sender: FDA-Public Use
  Company Number: US-AMGEN-STX181721

PATIENT
  Sex: Female

DRUGS (1)
  1. ENBREL [Suspect]
     Indication: RHEUMATOID ARTHRITIS
     Route: 058
     Dates: start: 20050228, end: 20060602

REACTIONS (8)
  - ARTHRALGIA [None]
  - BACK PAIN [None]
  - COMPRESSION FRACTURE [None]
  - HIP FRACTURE [None]
  - JOINT SWELLING [None]
  - NAUSEA [None]
  - PANCREATITIS [None]
  - VOMITING [None]
